FAERS Safety Report 9210668 (Version 2)
Quarter: 2013Q4

REPORT INFORMATION
  Report Type: Spontaneous
  Country: US (occurrence: US)
  Receive Date: 20130404
  Receipt Date: 20131230
  Transmission Date: 20140711
  Serious: Yes (Hospitalization, Other)
  Sender: FDA-Public Use
  Company Number: US-BAYER-2013-041117

PATIENT
  Age: 32 Year
  Sex: Female

DRUGS (18)
  1. YAZ [Suspect]
     Dosage: UNK
     Dates: start: 200708
  2. YASMIN [Suspect]
     Dosage: UNK
     Dates: start: 200708
  3. ORTHO TRI-CYCLEN [Concomitant]
  4. IBUPROFEN [Concomitant]
  5. TYLENOL #3 [Concomitant]
     Indication: PAIN
     Dosage: 500 MG, UNK
  6. TYLENOL #3 [Concomitant]
     Indication: PYREXIA
  7. PROTONIX [Concomitant]
  8. CODEINE [Concomitant]
     Dosage: 300 MG, UNK
  9. VICODIN [Concomitant]
  10. TRI-SPRINTEC [Concomitant]
  11. MORPHINE [Concomitant]
     Route: 042
  12. ZOFRAN [Concomitant]
     Indication: NAUSEA
  13. ALBUTEROL [Concomitant]
     Indication: DYSPNOEA
  14. MAALOX [Concomitant]
     Indication: DYSPEPSIA
  15. MYLANTA [Concomitant]
     Indication: DYSPEPSIA
     Dosage: 15 MG, UNK
  16. DIPHENHYDRAMINE [Concomitant]
     Dosage: 50 MG, UNK
  17. DOCUSATE SODIUM [Concomitant]
  18. ZOSYN [Concomitant]

REACTIONS (6)
  - Gallbladder injury [None]
  - Cholecystitis chronic [None]
  - Pain [None]
  - Injury [None]
  - Fear of disease [None]
  - Pain [None]
